FAERS Safety Report 26084383 (Version 2)
Quarter: 2025Q4

REPORT INFORMATION
  Report Type: Report from Study
  Country: US (occurrence: US)
  Receive Date: 20251124
  Receipt Date: 20251128
  Transmission Date: 20260117
  Serious: No
  Sender: BRISTOL-MYERS SQUIBB COMPANY
  Company Number: US-BRISTOL-MYERS SQUIBB COMPANY-2025-158656

PATIENT
  Age: 11 Year
  Sex: Female
  Weight: 34.93 kg

DRUGS (2)
  1. ORENCIA [Suspect]
     Active Substance: ABATACEPT
     Indication: Juvenile idiopathic arthritis
     Route: 058
     Dates: start: 20251118
  2. ORENCIA [Suspect]
     Active Substance: ABATACEPT

REACTIONS (4)
  - Pain [Unknown]
  - Drug hypersensitivity [Unknown]
  - Ligament sprain [Unknown]
  - Periarthritis [Unknown]

NARRATIVE: CASE EVENT DATE: 20251119
